FAERS Safety Report 8978240 (Version 1)
Quarter: 2012Q4

REPORT INFORMATION
  Report Type: Spontaneous
  Country: US (occurrence: None)
  Receive Date: 20121218
  Receipt Date: 20121218
  Transmission Date: 20130627
  Serious: No
  Sender: FDA-Public Use
  Company Number: None

PATIENT
  Age: 73 Year
  Sex: Female
  Weight: 50.8 kg

DRUGS (1)
  1. WELCHOL [Suspect]
     Indication: CHOLESTEROL
     Dosage: 3 tabs twice daily
     Dates: start: 20121003, end: 20121119

REACTIONS (6)
  - Abdominal pain [None]
  - Flatulence [None]
  - Abdominal discomfort [None]
  - Diarrhoea [None]
  - Insomnia [None]
  - Salivary hypersecretion [None]
